FAERS Safety Report 7151510-8 (Version None)
Quarter: 2010Q4

REPORT INFORMATION
  Report Type: 
  Country: None (occurrence: None)
  Receive Date: 20101210
  Receipt Date: 20101208
  Transmission Date: 20110411
  Serious: Yes (Other)
  Sender: FDA-Public Use
  Company Number: DE-EISAI INC.-E2090-01413-SPO-DE

PATIENT
  Age: 14 Year
  Sex: Male

DRUGS (2)
  1. ZONEGRAN [Suspect]
     Dosage: 400 MG DAILY
     Route: 048
     Dates: start: 20100907
  2. KEPPRA [Concomitant]
     Route: 048

REACTIONS (2)
  - DRY SKIN [None]
  - PRURITUS [None]
